FAERS Safety Report 8779520 (Version 1)
Quarter: 2012Q4

REPORT INFORMATION
  Report Type: 
  Country: US (occurrence: US)
  Receive Date: 20120912
  Receipt Date: 20120912
  Transmission Date: 20130627
  Serious: Yes (Other)
  Sender: FDA-Public Use
  Company Number: US-PFIZER INC-2012224252

PATIENT
  Age: 58 Year
  Sex: Female
  Weight: 113.83 kg

DRUGS (3)
  1. PRISTIQ [Suspect]
     Indication: DEPRESSION
     Dosage: 50 mg, daily
     Dates: start: 201109, end: 201209
  2. NORVASC [Concomitant]
     Indication: HYPERTENSION
     Dosage: 10 mg, daily
  3. ARMOUR THYROID [Concomitant]
     Indication: THYROID DISORDER
     Dosage: 180 mg, daily

REACTIONS (4)
  - Paraesthesia [Not Recovered/Not Resolved]
  - Eye movement disorder [Not Recovered/Not Resolved]
  - Depression [Not Recovered/Not Resolved]
  - Bed rest [Unknown]
